FAERS Safety Report 16344471 (Version 3)
Quarter: 2019Q3

REPORT INFORMATION
  Report Type: Spontaneous
  Country: FR (occurrence: FR)
  Receive Date: 20190522
  Receipt Date: 20190923
  Transmission Date: 20191004
  Serious: Yes (Other)
  Sender: FDA-Public Use
  Company Number: FR-GILEAD-2019-0408384

PATIENT
  Age: 49 Year
  Sex: Female

DRUGS (6)
  1. BIKTARVY [Suspect]
     Active Substance: BICTEGRAVIR SODIUM\EMTRICITABINE\TENOFOVIR ALAFENAMIDE FUMARATE
     Indication: HIV INFECTION
     Dosage: UNK
     Route: 065
     Dates: start: 20190320, end: 20190409
  2. ATARAX [ALPRAZOLAM] [Concomitant]
     Active Substance: ALPRAZOLAM
     Dosage: UNK UNK, PRN AT BEDTIME
  3. IMOVANE [Concomitant]
     Active Substance: ZOPICLONE
     Dosage: AT BEDTIME
  4. TRUVADA [Concomitant]
     Active Substance: EMTRICITABINE\TENOFOVIR DISOPROXIL FUMARATE
  5. FIBRATE [Concomitant]
     Active Substance: UNSPECIFIED INGREDIENT
  6. TIVICAY [Concomitant]
     Active Substance: DOLUTEGRAVIR SODIUM

REACTIONS (3)
  - Sleep disorder [Recovered/Resolved]
  - Asthenia [Recovered/Resolved]
  - Hallucination [Recovered/Resolved]

NARRATIVE: CASE EVENT DATE: 20190320
